FAERS Safety Report 9100012 (Version 2)
Quarter: 2013Q2

REPORT INFORMATION
  Report Type: Spontaneous
  Country: FI (occurrence: FI)
  Receive Date: 20130215
  Receipt Date: 20130417
  Transmission Date: 20140414
  Serious: Yes (Hospitalization)
  Sender: FDA-Public Use
  Company Number: FI-ELI_LILLY_AND_COMPANY-FI201302001908

PATIENT
  Age: 55 Year
  Sex: Female

DRUGS (7)
  1. FORSTEO [Suspect]
     Indication: OSTEOPOROSIS
     Dosage: 20 UG, QD
     Route: 058
     Dates: start: 20110419
  2. HUMIRA [Concomitant]
     Indication: RHEUMATIC DISORDER
  3. MAGNESIUM [Concomitant]
     Indication: MUSCLE SPASMS
  4. CALCIUM D [Concomitant]
     Indication: MEDICAL DIET
  5. ATARAX [Concomitant]
  6. SOMAC [Concomitant]
  7. PANADOL [Concomitant]
     Indication: PAIN

REACTIONS (1)
  - Urinary tract infection [Recovered/Resolved]
